FAERS Safety Report 11553264 (Version 1)
Quarter: 2015Q3

REPORT INFORMATION
  Report Type: Spontaneous
  Country: US (occurrence: US)
  Receive Date: 20150925
  Receipt Date: 20150925
  Transmission Date: 20151125
  Serious: No
  Sender: FDA-Public Use
  Company Number: US-BAYER-2015-430036

PATIENT
  Age: 51 Year
  Sex: Female
  Weight: 82.86 kg

DRUGS (1)
  1. ALEVE [Suspect]
     Active Substance: NAPROXEN SODIUM
     Dosage: 2 DF, BID
     Route: 048

REACTIONS (2)
  - Off label use [Unknown]
  - Benzodiazepine drug level [Unknown]

NARRATIVE: CASE EVENT DATE: 20150910
